FAERS Safety Report 6653307-1 (Version None)
Quarter: 2010Q1

REPORT INFORMATION
  Report Type: 
  Country: None (occurrence: None)
  Receive Date: 20100326
  Receipt Date: 20100315
  Transmission Date: 20100710
  Serious: Yes (Death, Other)
  Sender: FDA-Public Use
  Company Number: US-ASTRAZENECA-2010SE11219

PATIENT
  Sex: Female

DRUGS (2)
  1. SEROQUEL [Suspect]
     Indication: BIPOLAR DISORDER
     Route: 048
  2. SEROQUEL [Suspect]
     Route: 048
     Dates: start: 20060101

REACTIONS (3)
  - ARRHYTHMIA [None]
  - CONVULSION [None]
  - DEATH [None]
